FAERS Safety Report 7499884-2 (Version None)
Quarter: 2011Q2

REPORT INFORMATION
  Report Type: 
  Country: None (occurrence: None)
  Receive Date: 20110524
  Receipt Date: 20110503
  Transmission Date: 20111010
  Serious: Yes (Hospitalization)
  Sender: FDA-Public Use
  Company Number: DE-ACTELION-A-US2010-35455

PATIENT

DRUGS (11)
  1. REVATIO [Concomitant]
  2. CIPROFLOXACIN [Concomitant]
  3. CALCITRIOL [Concomitant]
  4. XIPAMID [Concomitant]
  5. MARCUMAR [Concomitant]
  6. TORSEMIDE [Concomitant]
  7. PERENTEROL [Concomitant]
  8. ENOXAPARIN SODIUM [Concomitant]
  9. VENTAVIS [Suspect]
     Indication: PULMONARY ARTERIAL HYPERTENSION
     Dosage: 2.5 UG, 5 X DAY
     Route: 055
     Dates: start: 20090328
  10. TRACLEER [Concomitant]
     Indication: PULMONARY ARTERIAL HYPERTENSION
     Dosage: UNK
     Route: 048
     Dates: start: 20081219
  11. FERROUS SULFATE TAB [Concomitant]

REACTIONS (8)
  - OEDEMA [None]
  - BUNDLE BRANCH BLOCK RIGHT [None]
  - ATRIAL FIBRILLATION [None]
  - DYSPNOEA [None]
  - EPISTAXIS [None]
  - ANAEMIA [None]
  - RIGHT VENTRICULAR FAILURE [None]
  - RENAL FAILURE ACUTE [None]
